FAERS Safety Report 8887273 (Version 1)
Quarter: 2012Q4

REPORT INFORMATION
  Report Type: 
  Country: US (occurrence: US)
  Receive Date: 20121105
  Receipt Date: 20121105
  Transmission Date: 20130627
  Serious: No
  Sender: FDA-Public Use
  Company Number: US-PFIZER INC-2012271227

PATIENT
  Age: 65 Year
  Sex: Male
  Weight: 72.56 kg

DRUGS (2)
  1. ELELYSO [Suspect]
     Indication: GAUCHER^S DISEASE
     Dosage: UNK, once in two weeks
     Route: 042
  2. RANITIDINE [Concomitant]
     Indication: ACID REFLUX (ESOPHAGEAL)
     Dosage: UNK

REACTIONS (5)
  - Screaming [Not Recovered/Not Resolved]
  - Middle insomnia [Not Recovered/Not Resolved]
  - Loss of libido [Not Recovered/Not Resolved]
  - Gastrooesophageal reflux disease [Not Recovered/Not Resolved]
  - Hypophagia [Not Recovered/Not Resolved]
